FAERS Safety Report 8209795-2 (Version None)
Quarter: 2012Q1

REPORT INFORMATION
  Report Type: 
  Country: None (occurrence: None)
  Receive Date: 20120314
  Receipt Date: 20120307
  Transmission Date: 20120608
  Serious: Yes (Death, Hospitalization, Other)
  Sender: FDA-Public Use
  Company Number: US-PFIZER INC-K201100727

PATIENT
  Age: 63 Year
  Sex: Female

DRUGS (8)
  1. CARBOPLATIN [Suspect]
     Indication: DISEASE PROGRESSION
     Dosage: UNK
     Dates: start: 20110506
  2. LEVOTHYROXINE SODIUM [Suspect]
     Indication: AUTOIMMUNE THYROIDITIS
     Dosage: UNK
     Route: 048
     Dates: start: 20110401
  3. IXEMPRA KIT [Suspect]
     Indication: BREAST CANCER
     Dosage: 16 MG/M2, CYCLIC
     Route: 042
     Dates: start: 20101119, end: 20110415
  4. BEVACIZUMAB [Suspect]
     Indication: BREAST CANCER
     Dosage: 10 MG/M2, CYCLIC; 10MG/KG
     Route: 042
     Dates: start: 20101119, end: 20110408
  5. LIOTHYRONINE SODIUM [Suspect]
     Indication: AUTOIMMUNE THYROIDITIS
     Dosage: UNK
     Route: 048
     Dates: start: 20110401
  6. GEMZAR [Suspect]
     Indication: BREAST CANCER
  7. GEMZAR [Suspect]
     Indication: DISEASE PROGRESSION
     Dosage: UNK
     Dates: start: 20110506
  8. CARBOPLATIN [Suspect]
     Indication: BREAST CANCER

REACTIONS (12)
  - NERVOUS SYSTEM DISORDER [None]
  - RESPIRATORY FAILURE [None]
  - WEIGHT DECREASED [None]
  - DYSPNOEA [None]
  - LARYNGEAL OEDEMA [None]
  - DYSPHAGIA [None]
  - FATIGUE [None]
  - PLEURAL EFFUSION [None]
  - PNEUMOTHORAX [None]
  - LOCAL SWELLING [None]
  - CARDIO-RESPIRATORY ARREST [None]
  - NEUROPATHY PERIPHERAL [None]
